FAERS Safety Report 5583834-X (Version None)
Quarter: 2008Q1

REPORT INFORMATION
  Report Type: 
  Country: None (occurrence: None)
  Receive Date: 20080108
  Receipt Date: 20071231
  Transmission Date: 20080703
  Serious: Yes (Hospitalization, Other)
  Sender: FDA-Public Use
  Company Number: PHFR2007GB03724

PATIENT
  Age: 40 Year
  Sex: Male

DRUGS (3)
  1. CARBAMAZEPINE [Suspect]
     Indication: ENCEPHALITIS
     Route: 065
  2. PHENYTOIN [Concomitant]
     Route: 065
  3. VALPROIC ACID [Concomitant]
     Route: 065

REACTIONS (12)
  - BLOOD IMMUNOGLOBULIN G DECREASED [None]
  - BLOOD IMMUNOGLOBULIN M DECREASED [None]
  - COMPUTERISED TOMOGRAM ABNORMAL [None]
  - CSF PRESSURE DECREASED [None]
  - CSF PROTEIN INCREASED [None]
  - CSF WHITE BLOOD CELL COUNT INCREASED [None]
  - DISTURBANCE IN ATTENTION [None]
  - ENCEPHALITIS HERPES [None]
  - ERYTHEMA MULTIFORME [None]
  - HYPOGAMMAGLOBULINAEMIA [None]
  - MEMORY IMPAIRMENT [None]
  - NUCLEAR MAGNETIC RESONANCE IMAGING BRAIN ABNORMAL [None]
